FAERS Safety Report 7375929-5 (Version None)
Quarter: 2011Q1

REPORT INFORMATION
  Report Type: 
  Country: None (occurrence: None)
  Receive Date: 20110315
  Receipt Date: 20110308
  Transmission Date: 20110831
  Serious: Yes (Hospitalization)
  Sender: FDA-Public Use
  Company Number: 2010SP026815

PATIENT
  Age: 31 Year
  Sex: Female
  Weight: 105.2345 kg

DRUGS (5)
  1. ACTOS [Concomitant]
  2. LISINOPRIL [Concomitant]
  3. ACETAMINOPHEN [Concomitant]
  4. NUVARING [Suspect]
     Indication: CONTRACEPTION
     Dosage: ;QM; VAG
     Route: 067
     Dates: start: 20080515, end: 20080817
  5. MULTI-VITAMIN [Concomitant]

REACTIONS (13)
  - HYPOTENSION [None]
  - BLOOD GLUCOSE INCREASED [None]
  - TREATMENT NONCOMPLIANCE [None]
  - UTERINE LEIOMYOMA [None]
  - GLYCOSURIA [None]
  - INTERNATIONAL NORMALISED RATIO DECREASED [None]
  - MENORRHAGIA [None]
  - COITAL BLEEDING [None]
  - PROTEINURIA [None]
  - PULMONARY EMBOLISM [None]
  - PULMONARY HYPERTENSION [None]
  - WEIGHT DECREASED [None]
  - PROTHROMBIN TIME SHORTENED [None]
